FAERS Safety Report 5597262-4 (Version None)
Quarter: 2008Q1

REPORT INFORMATION
  Report Type: 
  Country: None (occurrence: None)
  Receive Date: 20080121
  Receipt Date: 20080115
  Transmission Date: 20080703
  Serious: Yes (Other)
  Sender: FDA-Public Use
  Company Number: GB-TYCO HEALTHCARE/MALLINCKRODT-T200800021

PATIENT

DRUGS (1)
  1. OPTIRAY 300 [Suspect]
     Indication: COMPUTERISED TOMOGRAM ABDOMEN
     Dosage: 100 ML, SINGLE
     Route: 042
     Dates: start: 20080108, end: 20080108

REACTIONS (6)
  - EYELID OEDEMA [None]
  - LACRIMATION INCREASED [None]
  - OCULAR HYPERAEMIA [None]
  - RETINAL ARTERY SPASM [None]
  - SNEEZING [None]
  - VISUAL ACUITY REDUCED [None]
